FAERS Safety Report 17294165 (Version 6)
Quarter: 2021Q3

REPORT INFORMATION
  Report Type: Spontaneous
  Country: US (occurrence: US)
  Receive Date: 20200121
  Receipt Date: 20210818
  Transmission Date: 20211014
  Serious: Yes (Hospitalization, Other)
  Sender: FDA-Public Use
  Company Number: US-SA-2020SA012089

PATIENT
  Age: 58 Year
  Sex: Female

DRUGS (3)
  1. FABRAZYME [Suspect]
     Active Substance: AGALSIDASE BETA
     Indication: FABRY^S DISEASE
     Dosage: 25 MG, QOW (10 MG FROM 35MG VIAL; 5 MG FROM 5 MG VIAL)
     Route: 041
  2. FABRAZYME [Suspect]
     Active Substance: AGALSIDASE BETA
     Indication: LIPID METABOLISM DISORDER
     Dosage: 110 MG, QOW (105 MG FROM 35MG VIAL; 5 MG FROM 5 MG VIAL)
     Route: 041
     Dates: start: 20160919
  3. FABRAZYME [Suspect]
     Active Substance: AGALSIDASE BETA
     Indication: GAUCHER^S DISEASE
     Dosage: 110 MG, QOW (105 MG FROM 35MG VIAL; 5 MG FROM 5 MG VIAL)
     Route: 041
     Dates: start: 2020, end: 20200515

REACTIONS (4)
  - Product use in unapproved indication [Unknown]
  - Product dose omission issue [Unknown]
  - Cardiac fibrillation [Unknown]
  - Illness [Unknown]

NARRATIVE: CASE EVENT DATE: 20200719
